FAERS Safety Report 4351293-0 (Version None)
Quarter: 2004Q2

REPORT INFORMATION
  Report Type: 
  Country: None (occurrence: None)
  Receive Date: 20040430
  Receipt Date: 20040430
  Transmission Date: 20050107
  Serious: Yes (Life-Threatening, Hospitalization)
  Sender: FDA-Public Use
  Company Number: None

PATIENT
  Sex: Male

DRUGS (6)
  1. NAPROXEN [Suspect]
     Indication: BACK PAIN
     Dosage: ORAL
     Route: 048
     Dates: start: 20040127, end: 20040202
  2. FUROSEMIDE [Concomitant]
  3. METOLAZONE [Concomitant]
  4. HYDROCODONE/ACETAMINOPHEN [Concomitant]
  5. VICODIN [Concomitant]
  6. NAPROXEN [Concomitant]

REACTIONS (2)
  - CARDIAC FAILURE CONGESTIVE [None]
  - UPPER GASTROINTESTINAL HAEMORRHAGE [None]
